FAERS Safety Report 4826022-4 (Version None)
Quarter: 2005Q4

REPORT INFORMATION
  Report Type: 
  Country: None (occurrence: None)
  Receive Date: 20051111
  Receipt Date: 20051104
  Transmission Date: 20060501
  Serious: Yes (Hospitalization)
  Sender: FDA-Public Use
  Company Number: NO-MERCK-0511NOR00010

PATIENT
  Age: 82 Year
  Sex: Male

DRUGS (2)
  1. ZOCOR [Suspect]
     Indication: HYPERCHOLESTEROLAEMIA
     Route: 048
     Dates: start: 19990101, end: 20051001
  2. CAPTOPRIL [Suspect]
     Route: 048
     Dates: end: 20051001

REACTIONS (1)
  - DERMATITIS [None]
